FAERS Safety Report 6542718-0 (Version None)
Quarter: 2010Q1

REPORT INFORMATION
  Report Type: 
  Country: None (occurrence: None)
  Receive Date: 20100119
  Receipt Date: 20100108
  Transmission Date: 20100710
  Serious: Yes (Other)
  Sender: FDA-Public Use
  Company Number: CH-GENENTECH-296849

PATIENT
  Sex: Female

DRUGS (4)
  1. MABTHERA [Suspect]
     Indication: WALDENSTROM'S MACROGLOBULINAEMIA
     Dosage: 500 MG, UNK
     Route: 042
     Dates: start: 20090701
  2. MABTHERA [Suspect]
     Dosage: 600 MG, UNK
     Route: 042
  3. MABTHERA [Suspect]
     Dosage: 600 MG, UNK
     Route: 042
  4. MABTHERA [Suspect]
     Dosage: 100 MG, UNK
     Route: 042
     Dates: end: 20090901

REACTIONS (3)
  - ATRIAL FIBRILLATION [None]
  - PERICARDIAL EFFUSION [None]
  - TACHYCARDIA [None]
